FAERS Safety Report 8941761 (Version 2)
Quarter: 2013Q1

REPORT INFORMATION
  Report Type: Spontaneous
  Country: CH (occurrence: CH)
  Receive Date: 20121203
  Receipt Date: 20130111
  Transmission Date: 20140127
  Serious: Yes (Hospitalization)
  Sender: FDA-Public Use
  Company Number: CH-PFIZER INC-2012297159

PATIENT
  Age: 24 Year
  Sex: Male
  Weight: 77.5 kg

DRUGS (3)
  1. ZAVEDOS [Suspect]
     Indication: ACUTE MYELOID LEUKAEMIA
     Dosage: 24.7 MG, 1X/DAY
     Route: 041
     Dates: start: 20121101, end: 20121101
  2. CLOFARABINE [Suspect]
     Indication: ACUTE MYELOID LEUKAEMIA
     Dosage: 20 MG, 1X/DAY
     Route: 041
     Dates: start: 20121101, end: 20121101
  3. CYTOSAR [Concomitant]
     Indication: ACUTE MYELOID LEUKAEMIA
     Dosage: 412 MG, 1X/DAY
     Route: 041
     Dates: start: 20121101

REACTIONS (3)
  - Atrioventricular block complete [Recovering/Resolving]
  - Bradycardia [Recovering/Resolving]
  - Off label use [Recovered/Resolved]
